FAERS Safety Report 8145904-1 (Version None)
Quarter: 2012Q1

REPORT INFORMATION
  Report Type: 
  Country: None (occurrence: None)
  Receive Date: 20120217
  Receipt Date: 20111019
  Transmission Date: 20120608
  Serious: No
  Sender: FDA-Public Use
  Company Number: US-ABBOTT-11P-163-0866320-00

PATIENT
  Sex: Female
  Weight: 65.83 kg

DRUGS (4)
  1. ASPIRIN [Concomitant]
     Indication: PRODUCT USED FOR UNKNOWN INDICATION
  2. MUCINEX [Concomitant]
     Indication: PRODUCT USED FOR UNKNOWN INDICATION
  3. SIMCOR [Suspect]
     Indication: LOW DENSITY LIPOPROTEIN INCREASED
     Dosage: 500/40 MG AT BEDTIME
     Dates: start: 20110919
  4. AZOR [Concomitant]
     Indication: PRODUCT USED FOR UNKNOWN INDICATION

REACTIONS (1)
  - NASOPHARYNGITIS [None]
